FAERS Safety Report 7003327-2 (Version None)
Quarter: 2010Q3

REPORT INFORMATION
  Report Type: 
  Country: None (occurrence: None)
  Receive Date: 20100920
  Receipt Date: 20100811
  Transmission Date: 20110219
  Serious: No
  Sender: FDA-Public Use
  Company Number: A0875204A

PATIENT
  Age: 47 Year
  Sex: Female

DRUGS (5)
  1. LAMICTAL [Suspect]
     Indication: FIBROMYALGIA
     Dosage: 200MG TWICE PER DAY
     Route: 048
     Dates: start: 20100515, end: 20100721
  2. DIOVAN [Concomitant]
  3. XANAX [Concomitant]
  4. SYNTHROID [Concomitant]
  5. APIDRA [Concomitant]

REACTIONS (3)
  - GLOSSODYNIA [None]
  - RASH [None]
  - URTICARIA [None]
